FAERS Safety Report 8000221-5 (Version None)
Quarter: 2011Q4

REPORT INFORMATION
  Report Type: 
  Country: None (occurrence: None)
  Receive Date: 20111220
  Receipt Date: 20111220
  Transmission Date: 20120403
  Serious: Yes (Hospitalization)
  Sender: FDA-Public Use
  Company Number: None

PATIENT
  Sex: Female
  Weight: 83.5 kg

DRUGS (6)
  1. GLIPIZIDE + METFORMIN HCL [Concomitant]
  2. SITAGLIPTIN PHOSPHATE [Concomitant]
  3. BENDAMUSTINE 90 MG/M2 CEPHALON [Suspect]
     Indication: LYMPHOMA
     Dosage: 168-175 MG 2 DAYS PER CYCLE IV
     Route: 042
     Dates: start: 20101028, end: 20110121
  4. MELOXICAM [Concomitant]
  5. RITUXIMAB 375 MG/M2 GENENTECH [Suspect]
     Dosage: 700-730 MG 1 DAY PER CYCLE IV
     Route: 042
     Dates: start: 20101021, end: 20110317
  6. ZEVALIN [Suspect]
     Indication: LYMPHOMA
     Dosage: 32 MCI ONCE IV
     Route: 042
     Dates: start: 20110317

REACTIONS (1)
  - HERPES ZOSTER [None]
